FAERS Safety Report 8861698 (Version 1)
Quarter: 2012Q4

REPORT INFORMATION
  Report Type: 
  Country: US (occurrence: None)
  Receive Date: 20121025
  Receipt Date: 20121025
  Transmission Date: 20130627
  Serious: Yes (Hospitalization)
  Sender: FDA-Public Use
  Company Number: None

PATIENT
  Sex: Male
  Weight: 69.8 kg

DRUGS (1)
  1. ALFA 2 INTERFERON 2B (INTRON-A) [Suspect]
     Dates: end: 20121019

REACTIONS (10)
  - Pyrexia [None]
  - Chills [None]
  - Cough [None]
  - Oropharyngeal pain [None]
  - Ear pain [None]
  - Neutrophil count decreased [None]
  - Haemoglobin decreased [None]
  - Platelet count decreased [None]
  - Peritonsillar abscess [None]
  - Otitis media [None]
